FAERS Safety Report 7803801-2 (Version None)
Quarter: 2011Q4

REPORT INFORMATION
  Report Type: 
  Country: None (occurrence: None)
  Receive Date: 20111010
  Receipt Date: 20111003
  Transmission Date: 20120403
  Serious: Yes (Death, Hospitalization)
  Sender: FDA-Public Use
  Company Number: US-ELI_LILLY_AND_COMPANY-US201110000576

PATIENT
  Age: 82 Year
  Sex: Female

DRUGS (2)
  1. HUMALOG MIX 75/25 [Suspect]
     Indication: DIABETES MELLITUS
     Dosage: 30 U, EACH MORNING
  2. HUMALOG MIX 75/25 [Suspect]
     Dosage: 25 U, EACH EVENING

REACTIONS (7)
  - DEATH [None]
  - CONVULSION [None]
  - CARDIAC DISORDER [None]
  - MALAISE [None]
  - HYPERTENSION [None]
  - BLOOD CHOLESTEROL INCREASED [None]
  - COMA [None]
